FAERS Safety Report 20795225 (Version 1)
Quarter: 2022Q2

REPORT INFORMATION
  Report Type: Spontaneous
  Country: US (occurrence: None)
  Receive Date: 20220505
  Receipt Date: 20220505
  Transmission Date: 20220721
  Serious: No
  Sender: FDA-Public Use
  Company Number: None

PATIENT
  Age: 42 Year
  Sex: Female
  Weight: 65.25 kg

DRUGS (1)
  1. JUNEL FE 1.5/30 [Suspect]
     Active Substance: ETHINYL ESTRADIOL\NORETHINDRONE ACETATE
     Indication: In vitro fertilisation
     Dosage: FREQUENCY : AT BEDTIME;?
     Route: 048
     Dates: start: 20220307, end: 20220419

REACTIONS (5)
  - Abdominal distension [None]
  - Nausea [None]
  - Breast tenderness [None]
  - Feeling of despair [None]
  - Loss of personal independence in daily activities [None]

NARRATIVE: CASE EVENT DATE: 20220401
